FAERS Safety Report 13598795 (Version 1)
Quarter: 2017Q2

REPORT INFORMATION
  Report Type: Spontaneous
  Country: US (occurrence: US)
  Receive Date: 20170531
  Receipt Date: 20170531
  Transmission Date: 20170830
  Serious: No
  Sender: FDA-Public Use
  Company Number: US-BAYER-2017-100981

PATIENT
  Sex: Female

DRUGS (1)
  1. CLIMARA PRO [Suspect]
     Active Substance: ESTRADIOL\LEVONORGESTREL
     Dosage: 0.045 MG ESTRADIOL / 0.015G LLEVONORGESTREL
     Route: 062

REACTIONS (4)
  - Skin irritation [Unknown]
  - Rubber sensitivity [Unknown]
  - Product adhesion issue [Unknown]
  - Product physical issue [Unknown]
